FAERS Safety Report 13162941 (Version 1)
Quarter: 2017Q1

REPORT INFORMATION
  Report Type: Spontaneous
  Country: FR (occurrence: FR)
  Receive Date: 20170130
  Receipt Date: 20170130
  Transmission Date: 20170428
  Serious: Yes (Life-Threatening, Disabling)
  Sender: FDA-Public Use
  Company Number: FR-JNJFOC-20170124179

PATIENT
  Age: 57 Year
  Sex: Male

DRUGS (4)
  1. HALDOL [Suspect]
     Active Substance: HALOPERIDOL
     Indication: PSYCHIATRIC DECOMPENSATION
     Route: 048
     Dates: start: 20161014, end: 20161026
  2. LOXAPAC [Suspect]
     Active Substance: LOXAPINE SUCCINATE
     Indication: PSYCHIATRIC DECOMPENSATION
     Dosage: 75-75-75-100 DROPS
     Route: 048
     Dates: start: 20161011, end: 20161026
  3. LEPTICUR [Suspect]
     Active Substance: TROPATEPINE HYDROCHLORIDE
     Indication: PSYCHIATRIC DECOMPENSATION
     Route: 048
     Dates: start: 20161021, end: 20161026
  4. VALIUM [Concomitant]
     Active Substance: DIAZEPAM
     Dosage: ONE VIAL INJECTED FOLLOWED BY 15 DROPS X 3/DAY
     Route: 048

REACTIONS (1)
  - Intestinal obstruction [Recovered/Resolved with Sequelae]

NARRATIVE: CASE EVENT DATE: 20161026
